FAERS Safety Report 7439882-8 (Version None)
Quarter: 2011Q2

REPORT INFORMATION
  Report Type: 
  Country: None (occurrence: None)
  Receive Date: 20110427
  Receipt Date: 20110418
  Transmission Date: 20111010
  Serious: Yes (Hospitalization, Other)
  Sender: FDA-Public Use
  Company Number: US-ASTRAZENECA-2011SE22181

PATIENT
  Age: 65 Year
  Sex: Male

DRUGS (11)
  1. DIURETICS [Concomitant]
  2. SAXAGLIPTIN [Concomitant]
  3. NITRATES [Concomitant]
  4. BETA BLOCKER [Concomitant]
  5. PRILOSEC [Suspect]
     Route: 048
  6. NOVOLOG [Suspect]
     Indication: TYPE 2 DIABETES MELLITUS
     Dosage: 150 INTERNATIONAL UNIT
     Route: 065
     Dates: end: 20101122
  7. NOVOLOG [Suspect]
     Dosage: UNKNOWN DOSE
     Route: 065
     Dates: start: 20101122
  8. ADENOSINE DIPHOSPHATE ANTAGONIST [Concomitant]
  9. ANGIOTENSIN CONVERTING ENZYME INHIBITOR [Concomitant]
  10. EZETIMIBE [Concomitant]
     Dates: start: 20101008
  11. ASPIRIN [Concomitant]
     Dates: start: 20101008

REACTIONS (3)
  - FIBULA FRACTURE [None]
  - TIBIA FRACTURE [None]
  - FALL [None]
